FAERS Safety Report 20756261 (Version 1)
Quarter: 2022Q2

REPORT INFORMATION
  Report Type: Spontaneous
  Country: JP (occurrence: JP)
  Receive Date: 20220427
  Receipt Date: 20220427
  Transmission Date: 20220721
  Serious: Yes (Hospitalization)
  Sender: FDA-Public Use
  Company Number: JP-ABBVIE-22K-087-4346266-00

PATIENT

DRUGS (1)
  1. SKYRIZI [Suspect]
     Active Substance: RISANKIZUMAB-RZAA
     Indication: Erythrodermic psoriasis
     Route: 058
     Dates: start: 202010, end: 2020

REACTIONS (4)
  - Pyrexia [Unknown]
  - Fear of disease [Unknown]
  - Intentional product misuse [Unknown]
  - Erythrodermic psoriasis [Unknown]

NARRATIVE: CASE EVENT DATE: 20200101
